FAERS Safety Report 5252112-0 (Version None)
Quarter: 2007Q1

REPORT INFORMATION
  Report Type: 
  Country: None (occurrence: None)
  Receive Date: 20070226
  Receipt Date: 20070205
  Transmission Date: 20070707
  Serious: Yes (Other)
  Sender: FDA-Public Use
  Company Number: B0458442A

PATIENT
  Age: 70 Year
  Sex: Male

DRUGS (2)
  1. ZOVIRAX [Suspect]
     Indication: HERPES SIMPLEX OPHTHALMIC
     Dosage: TOPICAL
     Route: 061
  2. FLUORMETHOLONE [Suspect]
     Indication: HERPES SIMPLEX OPHTHALMIC

REACTIONS (5)
  - CORNEAL OEDEMA [None]
  - DISEASE RECURRENCE [None]
  - DRUG RESISTANCE [None]
  - HERPES SIMPLEX OPHTHALMIC [None]
  - TREATMENT NONCOMPLIANCE [None]
